FAERS Safety Report 25878848 (Version 1)
Quarter: 2025Q4

REPORT INFORMATION
  Report Type: Spontaneous
  Country: US (occurrence: US)
  Receive Date: 20251003
  Receipt Date: 20251003
  Transmission Date: 20260117
  Serious: No
  Sender: GALDERMA
  Company Number: US-GALDERMA-US2025017187

PATIENT

DRUGS (4)
  1. NEMLUVIO [Suspect]
     Active Substance: NEMOLIZUMAB-ILTO
     Indication: Neurodermatitis
     Dosage: 60 MILLIGRAM
     Route: 058
     Dates: start: 20250903, end: 20250903
  2. BUPRENORPHINE AND NALOXONE [Concomitant]
     Active Substance: BUPRENORPHINE HYDROCHLORIDE\NALOXONE HYDROCHLORIDE
     Indication: Restless legs syndrome
     Dosage: UNK
     Dates: start: 2024
  3. FAMCICLOVIR [Concomitant]
     Active Substance: FAMCICLOVIR
     Indication: Herpes virus infection
     Dosage: UNK
     Dates: start: 2025
  4. FAMCICLOVIR [Concomitant]
     Active Substance: FAMCICLOVIR
     Indication: Herpes zoster

REACTIONS (7)
  - Lethargy [Not Recovered/Not Resolved]
  - Malaise [Not Recovered/Not Resolved]
  - Dizziness [Not Recovered/Not Resolved]
  - Nausea [Not Recovered/Not Resolved]
  - Headache [Recovered/Resolved]
  - Pain [Not Recovered/Not Resolved]
  - Back pain [Not Recovered/Not Resolved]

NARRATIVE: CASE EVENT DATE: 20250904
